FAERS Safety Report 5042210-9 (Version None)
Quarter: 2006Q2

REPORT INFORMATION
  Report Type: 
  Country: None (occurrence: None)
  Receive Date: 20060601
  Receipt Date: 20060306
  Transmission Date: 20061013
  Serious: No
  Sender: FDA-Public Use
  Company Number: 2006PV009763

PATIENT
  Age: 63 Year
  Sex: Female
  Weight: 105.6881 kg

DRUGS (4)
  1. BYETTA [Suspect]
     Indication: DIABETES MELLITUS NON-INSULIN-DEPENDENT
     Dosage: 5 MCG;BID;SC
     Route: 058
     Dates: start: 20060302
  2. GLUCOVANCE [Concomitant]
  3. NOVOLOG MIX 70/30 [Concomitant]
  4. LANTUS [Concomitant]

REACTIONS (6)
  - ABDOMINAL PAIN UPPER [None]
  - BLOOD GLUCOSE INCREASED [None]
  - DYSGEUSIA [None]
  - EARLY SATIETY [None]
  - NAUSEA [None]
  - RETCHING [None]
